FAERS Safety Report 8915205 (Version 2)
Quarter: 2013Q1

REPORT INFORMATION
  Report Type: Spontaneous
  Country: US (occurrence: US)
  Receive Date: 20121119
  Receipt Date: 20130128
  Transmission Date: 20140127
  Serious: No
  Sender: FDA-Public Use
  Company Number: US-JNJFOC-20121103411

PATIENT
  Age: 25 Year
  Sex: Male

DRUGS (5)
  1. RISPERDAL CONSTA [Suspect]
     Indication: PRODUCT USED FOR UNKNOWN INDICATION
     Route: 030
     Dates: start: 20121031
  2. UNKNOWN MEDICATION [Concomitant]
     Route: 065
  3. WELLBUTRIN [Concomitant]
     Route: 048
     Dates: start: 20110426
  4. DEPAKOTE [Concomitant]
     Route: 048
     Dates: start: 20110131
  5. DEPAKOTE [Concomitant]
     Route: 048
     Dates: start: 20110131

REACTIONS (4)
  - Adverse event [Unknown]
  - Product quality issue [Unknown]
  - Device malfunction [Unknown]
  - Underdose [Unknown]
